FAERS Safety Report 17145483 (Version 2)
Quarter: 2020Q1

REPORT INFORMATION
  Report Type: Spontaneous
  Country: US (occurrence: US)
  Receive Date: 20191212
  Receipt Date: 20200124
  Transmission Date: 20200409
  Serious: No
  Sender: FDA-Public Use
  Company Number: US-GW PHARMA-201912USGW4510

PATIENT

DRUGS (2)
  1. EPIDIOLEX [Suspect]
     Active Substance: CANNABIDIOL
     Indication: EPILEPSY
     Dosage: 500 MILLIGRAM, BID
     Route: 048
     Dates: start: 20191123
  2. FLU VACCINE VII [Suspect]
     Active Substance: INFLUENZA VIRUS VACCINE
     Indication: INFLUENZA IMMUNISATION
     Route: 065

REACTIONS (2)
  - Product dose omission [Unknown]
  - Presyncope [Unknown]

NARRATIVE: CASE EVENT DATE: 20191205
